FAERS Safety Report 9421137 (Version 1)
Quarter: 2013Q3

REPORT INFORMATION
  Report Type: Spontaneous
  Country: CZ (occurrence: CZ)
  Receive Date: 20130725
  Receipt Date: 20130725
  Transmission Date: 20140515
  Serious: Yes (Other)
  Sender: FDA-Public Use
  Company Number: PHHY2013CZ076891

PATIENT
  Age: 79 Year
  Sex: Female

DRUGS (4)
  1. ALENDRONIC ACID [Suspect]
     Indication: OSTEOPOROSIS
     Dosage: 70 MG, QW
     Route: 048
  2. CALCIUM CARBONATE [Concomitant]
  3. HEPARIN [Concomitant]
  4. PARACETAMOL [Concomitant]

REACTIONS (8)
  - Osteonecrosis [Unknown]
  - Otorrhoea [Recovered/Resolved]
  - Ear pain [Recovered/Resolved]
  - Scab [Unknown]
  - Excessive granulation tissue [Unknown]
  - Inner ear inflammation [Recovered/Resolved]
  - Ear canal injury [Recovering/Resolving]
  - Ear infection [Unknown]
